FAERS Safety Report 14347698 (Version 1)
Quarter: 2018Q1

REPORT INFORMATION
  Report Type: Spontaneous
  Country: US (occurrence: US)
  Receive Date: 20180103
  Receipt Date: 20180103
  Transmission Date: 20180509
  Serious: No
  Sender: FDA-Public Use
  Company Number: US-PFIZER INC-2017555077

PATIENT
  Age: 58 Year
  Sex: Male
  Weight: 95.25 kg

DRUGS (2)
  1. VICODIN [Concomitant]
     Active Substance: ACETAMINOPHEN\HYDROCODONE BITARTRATE
     Indication: SCIATICA
     Dosage: [HYDROCODONE BITARTRATE 10MG]/[PARACETAMOL 325MG], ONE TABLET, EVERY 4 HOURS
     Route: 048
  2. LYRICA [Suspect]
     Active Substance: PREGABALIN
     Indication: SCIATICA
     Dosage: 50 MG, ONE BY MOUTH IN THE EVENING FOR 30 DAYS
     Route: 048
     Dates: end: 201710

REACTIONS (6)
  - Nausea [Recovered/Resolved]
  - Mental disorder [Recovered/Resolved]
  - Neurological symptom [Recovered/Resolved]
  - Malaise [Recovered/Resolved]
  - Headache [Recovered/Resolved]
  - Emotional disorder [Recovered/Resolved]
